FAERS Safety Report 8041565-0 (Version None)
Quarter: 2012Q1

REPORT INFORMATION
  Report Type: 
  Country: None (occurrence: None)
  Receive Date: 20120112
  Receipt Date: 20120106
  Transmission Date: 20120608
  Serious: Yes (Life-Threatening)
  Sender: FDA-Public Use
  Company Number: US-JNJFOC-20120102144

PATIENT
  Age: 38 Year
  Sex: Female

DRUGS (4)
  1. DURAGESIC-100 [Suspect]
     Indication: PRODUCT USED FOR UNKNOWN INDICATION
     Route: 062
  2. RITALIN [Suspect]
     Indication: PRODUCT USED FOR UNKNOWN INDICATION
     Route: 065
  3. OXYCODONE HCL AND ACETAMINOPHEN [Suspect]
     Indication: PRODUCT USED FOR UNKNOWN INDICATION
     Route: 065
  4. MORPHINE [Suspect]
     Indication: PRODUCT USED FOR UNKNOWN INDICATION
     Route: 065

REACTIONS (8)
  - MULTIPLE DRUG OVERDOSE [None]
  - TACHYCARDIA [None]
  - BLOOD POTASSIUM DECREASED [None]
  - ELECTROCARDIOGRAM QT PROLONGED [None]
  - CONFUSIONAL STATE [None]
  - INSOMNIA [None]
  - AGITATION [None]
  - IRRITABILITY [None]
